FAERS Safety Report 7489091-1 (Version None)
Quarter: 2011Q2

REPORT INFORMATION
  Report Type: 
  Country: None (occurrence: None)
  Receive Date: 20110518
  Receipt Date: 20110506
  Transmission Date: 20111010
  Serious: Yes (Death, Life-Threatening, Hospitalization)
  Sender: FDA-Public Use
  Company Number: FR-KINGPHARMUSA00001-K201100557

PATIENT
  Age: 78 Year
  Sex: Female

DRUGS (3)
  1. PLAVIX [Suspect]
     Dosage: 75 MG, QD
     Route: 048
     Dates: start: 20091101
  2. ALTACE [Suspect]
     Indication: HYPERTENSION
     Dosage: 5 MG, Q12H
     Route: 048
     Dates: start: 20010101
  3. ATORVASTATIN [Concomitant]
     Indication: HYPERCHOLESTEROLAEMIA
     Dosage: 40 MG, QD
     Route: 048
     Dates: start: 20091201

REACTIONS (2)
  - MYOCARDIAL INFARCTION [None]
  - HYPERCHOLESTEROLAEMIA [None]
